FAERS Safety Report 23500780 (Version 1)
Quarter: 2024Q1

REPORT INFORMATION
  Report Type: Spontaneous
  Country: US (occurrence: US)
  Receive Date: 20240208
  Receipt Date: 20240208
  Transmission Date: 20240409
  Serious: Yes (Other)
  Sender: FDA-Public Use
  Company Number: US-DRL-USA-LIT/USA/24/0002065

PATIENT
  Age: 60 Year
  Sex: Female

DRUGS (4)
  1. GEMCITABINE [Suspect]
     Active Substance: GEMCITABINE
     Indication: Nonkeratinising carcinoma of nasopharynx
  2. CAPECITABINE [Suspect]
     Active Substance: CAPECITABINE
     Indication: Nonkeratinising carcinoma of nasopharynx
  3. CISPLATIN [Suspect]
     Active Substance: CISPLATIN
     Indication: Nonkeratinising carcinoma of nasopharynx
  4. PEMBROLIZUMAB [Suspect]
     Active Substance: PEMBROLIZUMAB
     Indication: Nonkeratinising carcinoma of nasopharynx

REACTIONS (2)
  - Disease progression [Recovered/Resolved]
  - Treatment failure [Unknown]
